FAERS Safety Report 5288992-2 (Version None)
Quarter: 2007Q2

REPORT INFORMATION
  Report Type: 
  Country: None (occurrence: None)
  Receive Date: 20070405
  Receipt Date: 20060915
  Transmission Date: 20071010
  Serious: Yes (Hospitalization, Other)
  Sender: FDA-Public Use
  Company Number: PFIZER INC-2007019682

PATIENT
  Sex: Female

DRUGS (1)
  1. ZOLOFT [Suspect]

REACTIONS (4)
  - ADVERSE DRUG REACTION [None]
  - BACK INJURY [None]
  - FALL [None]
  - HEAD INJURY [None]
